FAERS Safety Report 14441989 (Version 1)
Quarter: 2018Q1

REPORT INFORMATION
  Report Type: Spontaneous
  Country: TR (occurrence: TR)
  Receive Date: 20180125
  Receipt Date: 20180125
  Transmission Date: 20180509
  Serious: Yes (Hospitalization, Other)
  Sender: FDA-Public Use
  Company Number: TR-MYLANLABS-2018M1005734

PATIENT
  Age: 5 Month
  Sex: Female
  Weight: 6.9 kg

DRUGS (1)
  1. CLOBETASOL [Suspect]
     Active Substance: CLOBETASOL
     Indication: DERMATITIS DIAPER
     Dosage: FOR LAST TWO MONTHS IN EVERY DIAPER CHANGE
     Route: 061

REACTIONS (6)
  - Meningitis bacterial [Recovered/Resolved]
  - Cushing^s syndrome [Recovered/Resolved]
  - Cerebral atrophy [Recovered/Resolved]
  - Intentional product misuse [Recovered/Resolved]
  - Delayed myelination [Recovered/Resolved]
  - Hepatic steatosis [Recovered/Resolved]
